FAERS Safety Report 7634359-9 (Version None)
Quarter: 2011Q3

REPORT INFORMATION
  Report Type: 
  Country: None (occurrence: None)
  Receive Date: 20110725
  Receipt Date: 20110715
  Transmission Date: 20111222
  Serious: Yes (Hospitalization)
  Sender: FDA-Public Use
  Company Number: US-ASTRAZENECA-2010SE34792

PATIENT
  Age: 55 Year
  Sex: Female
  Weight: 73 kg

DRUGS (6)
  1. SEROQUEL [Suspect]
     Route: 048
  2. PROZAC [Concomitant]
  3. SEROQUEL [Suspect]
     Route: 048
  4. SEROQUEL [Suspect]
     Route: 048
     Dates: start: 20100726
  5. WELLBUTRIN [Concomitant]
  6. SEROQUEL [Suspect]
     Indication: BIPOLAR DISORDER
     Route: 048
     Dates: start: 20050101

REACTIONS (7)
  - UPPER LIMB FRACTURE [None]
  - DELUSION [None]
  - HALLUCINATIONS, MIXED [None]
  - FALL [None]
  - ELBOW OPERATION [None]
  - INSOMNIA [None]
  - DRUG DOSE OMISSION [None]
